FAERS Safety Report 10018667 (Version 2)
Quarter: 2014Q1

REPORT INFORMATION
  Report Type: Spontaneous
  Country: BR (occurrence: BR)
  Receive Date: 20140318
  Receipt Date: 20140319
  Transmission Date: 20141002
  Serious: Yes (Other)
  Sender: FDA-Public Use
  Company Number: BR-ABBVIE-14P-020-1212923-00

PATIENT
  Age: 35 Year
  Sex: Male
  Weight: 79 kg

DRUGS (3)
  1. DEPAKENE [Suspect]
     Indication: MENTAL DISORDER
     Route: 048
     Dates: start: 2013
  2. DEPAKENE [Suspect]
     Route: 048
     Dates: start: 20140228, end: 20140228
  3. ALCOHOL [Suspect]
     Indication: PRODUCT USED FOR UNKNOWN INDICATION

REACTIONS (11)
  - Myocardial infarction [Unknown]
  - Overdose [Unknown]
  - Wrong technique in drug usage process [Unknown]
  - Angina pectoris [Unknown]
  - Chest pain [Unknown]
  - Vomiting [Unknown]
  - Pain in extremity [Not Recovered/Not Resolved]
  - Back pain [Recovered/Resolved]
  - Drooling [Unknown]
  - Grimacing [Unknown]
  - Fall [Unknown]
